FAERS Safety Report 5587789-3 (Version None)
Quarter: 2008Q1

REPORT INFORMATION
  Report Type: 
  Country: None (occurrence: None)
  Receive Date: 20080108
  Receipt Date: 20080102
  Transmission Date: 20080703
  Serious: Yes (Other)
  Sender: FDA-Public Use
  Company Number: 2007RL000525

PATIENT
  Age: 73 Year
  Sex: Female

DRUGS (6)
  1. LOVAZA [Suspect]
     Indication: BLOOD TRIGLYCERIDES INCREASED
     Dosage: 1.2 GM;BID;PO; 2.2 GM;PBID PO
     Route: 048
     Dates: start: 20050101, end: 20071101
  2. LOVAZA [Suspect]
     Indication: BLOOD TRIGLYCERIDES INCREASED
     Dosage: 1.2 GM;BID;PO; 2.2 GM;PBID PO
     Route: 048
     Dates: start: 20071201
  3. ALTACE [Concomitant]
  4. VERAPAMIL [Concomitant]
  5. TENORMIN [Concomitant]
  6. ZETIA [Concomitant]

REACTIONS (3)
  - ANOPLASTY [None]
  - OPERATIVE HAEMORRHAGE [None]
  - SQUAMOUS CELL CARCINOMA OF SKIN [None]
